FAERS Safety Report 25905951 (Version 1)
Quarter: 2025Q4

REPORT INFORMATION
  Report Type: Spontaneous
  Country: EU (occurrence: EU)
  Receive Date: 20251010
  Receipt Date: 20251010
  Transmission Date: 20260118
  Serious: Yes (Other)
  Sender: CHEPLAPHARM
  Company Number: None

PATIENT
  Age: 76 Year
  Sex: Female

DRUGS (3)
  1. CAPECITABINE [Suspect]
     Active Substance: CAPECITABINE
     Indication: Breast cancer
     Dosage: FOUR TABLETS MORNING AND EVENING?DAILY DOSE: 8 DOSAGE FORM
     Route: 048
     Dates: start: 202503, end: 20250825
  2. CAPECITABINE [Suspect]
     Active Substance: CAPECITABINE
     Indication: Breast cancer
     Dosage: RESUMED AT A REDUCED DOSE (3 TABLETS MORNING AND 3 EVENING) INSTEAD OF FOUR TABLETS MORNING AND E...
     Route: 048
     Dates: start: 20250915
  3. DOSTARLIMAB [Concomitant]
     Active Substance: DOSTARLIMAB
     Dates: end: 2025

REACTIONS (2)
  - Dermatitis psoriasiform [Recovered/Resolved]
  - Palmar-plantar erythrodysaesthesia syndrome [Recovered/Resolved]

NARRATIVE: CASE EVENT DATE: 20250401
